FAERS Safety Report 24254143 (Version 1)
Quarter: 2024Q3

REPORT INFORMATION
  Report Type: Spontaneous
  Country: US (occurrence: None)
  Receive Date: 20240826
  Receipt Date: 20240826
  Transmission Date: 20241017
  Serious: No
  Sender: Public
  Company Number: None

PATIENT
  Age: 30 Year
  Sex: Female

DRUGS (2)
  1. GLIMEPIRIDE\METFORMIN [Suspect]
     Active Substance: GLIMEPIRIDE\METFORMIN
  2. INSULIN HUMAN [Suspect]
     Active Substance: INSULIN HUMAN

REACTIONS (4)
  - Product dose omission issue [None]
  - Hypoglycaemia [None]
  - Overdose [None]
  - Product prescribing error [None]
